FAERS Safety Report 25686427 (Version 3)
Quarter: 2025Q3

REPORT INFORMATION
  Report Type: Spontaneous
  Country: US (occurrence: US)
  Receive Date: 20250815
  Receipt Date: 20250911
  Transmission Date: 20251021
  Serious: No
  Sender: BLUEPRINT MEDICINES
  Company Number: US-Blueprint Medicines Corporation-2025-AER-01787

PATIENT
  Age: 46 Year
  Sex: Female

DRUGS (4)
  1. AYVAKIT [Suspect]
     Active Substance: AVAPRITINIB
     Indication: Indolent systemic mastocytosis
     Route: 065
     Dates: start: 20250729
  2. AYVAKIT [Suspect]
     Active Substance: AVAPRITINIB
     Route: 065
     Dates: start: 20250729
  3. AYVAKIT [Suspect]
     Active Substance: AVAPRITINIB
     Route: 065
  4. AYVAKIT [Suspect]
     Active Substance: AVAPRITINIB
     Route: 065
     Dates: start: 20250729

REACTIONS (10)
  - Nausea [Unknown]
  - Vomiting [Unknown]
  - Swelling face [Unknown]
  - Vision blurred [Unknown]
  - Fatigue [Unknown]
  - Pain [Unknown]
  - Adverse drug reaction [Unknown]
  - Periorbital swelling [Recovering/Resolving]
  - Swelling of eyelid [Not Recovered/Not Resolved]
  - Off label use [Unknown]
